FAERS Safety Report 8605013 (Version 5)
Quarter: 2012Q4

REPORT INFORMATION
  Report Type: 
  Country: US (occurrence: US)
  Receive Date: 20120608
  Receipt Date: 20121120
  Transmission Date: 20130627
  Serious: Yes (Hospitalization, Disabling, Other)
  Sender: FDA-Public Use
  Company Number: US-CELGENEUS-163-21880-12060475

PATIENT
  Age: 68 None
  Sex: Male

DRUGS (14)
  1. REVLIMID [Suspect]
     Indication: MULTIPLE MYELOMA
     Dosage: 15 Milligram
     Route: 048
     Dates: start: 200712, end: 2008
  2. REVLIMID [Suspect]
     Dosage: 20 Milligram
     Route: 048
     Dates: start: 200803, end: 201004
  3. REVLIMID [Suspect]
     Dosage: 15 Milligram
     Route: 048
     Dates: start: 201005, end: 201104
  4. REVLIMID [Suspect]
     Dosage: 5 Milligram
     Route: 048
     Dates: start: 201104, end: 201109
  5. ACYCLOVIR [Concomitant]
     Indication: DRUG USE FOR UNKNOWN INDICATION
     Dosage: 400 Milligram
     Route: 048
  6. ALLOPURINOL [Concomitant]
     Indication: DRUG USE FOR UNKNOWN INDICATION
     Dosage: 100 Milligram
     Route: 048
  7. BACITRACIN [Concomitant]
     Indication: DRUG USE FOR UNKNOWN INDICATION
     Route: 065
  8. BACTRIM [Concomitant]
     Indication: DRUG USE FOR UNKNOWN INDICATION
     Dosage: 228.5714 Milligram
     Route: 048
  9. INDOMETHACIN [Concomitant]
     Indication: DRUG USE FOR UNKNOWN INDICATION
     Dosage: 50 Milligram
     Route: 048
  10. LOMOTIL [Concomitant]
     Indication: DRUG USE FOR UNKNOWN INDICATION
     Dosage: 2.5 Milligram
     Route: 048
  11. PERCOCET [Concomitant]
     Indication: PAIN
     Dosage: 5/325mg
     Route: 048
  12. POTASSIUM [Concomitant]
     Indication: DRUG USE FOR UNKNOWN INDICATION
     Dosage: 20 Milliequivalents
     Route: 048
  13. VELCADE [Concomitant]
     Indication: DRUG USE FOR UNKNOWN INDICATION
     Route: 065
  14. DEXAMETHASONE [Concomitant]
     Indication: DRUG USE FOR UNKNOWN INDICATION
     Route: 065

REACTIONS (6)
  - Malignant melanoma [Recovered/Resolved]
  - Malignant melanoma [Recovered/Resolved]
  - Malignant melanoma in situ [Recovered/Resolved]
  - Basal cell carcinoma [Unknown]
  - Squamous cell carcinoma of skin [Unknown]
  - Immunosuppression [Unknown]
